FAERS Safety Report 7837355-1 (Version None)
Quarter: 2011Q4

REPORT INFORMATION
  Report Type: 
  Country: None (occurrence: None)
  Receive Date: 20111024
  Receipt Date: 20110915
  Transmission Date: 20120403
  Serious: No
  Sender: FDA-Public Use
  Company Number: US-ABBOTT-11P-163-0855484-00

PATIENT
  Sex: Female
  Weight: 74.91 kg

DRUGS (2)
  1. LUPRON DEPOT [Suspect]
     Indication: ENDOMETRIOSIS
     Dates: start: 20110701, end: 20110901
  2. NORETHINDRONE [Concomitant]
     Indication: HORMONE THERAPY
     Dates: start: 20110701

REACTIONS (9)
  - MIGRAINE [None]
  - ANXIETY [None]
  - EMOTIONAL DISTRESS [None]
  - NIGHTMARE [None]
  - THIRST [None]
  - EMOTIONAL DISORDER [None]
  - CRYING [None]
  - MOOD SWINGS [None]
  - DYSGEUSIA [None]
